FAERS Safety Report 23313775 (Version 1)
Quarter: 2023Q4

REPORT INFORMATION
  Report Type: Spontaneous
  Country: US (occurrence: None)
  Receive Date: 20231219
  Receipt Date: 20231219
  Transmission Date: 20240109
  Serious: Yes (Life-Threatening)
  Sender: FDA-Public Use
  Company Number: None

PATIENT
  Age: 77 Year
  Sex: Male
  Weight: 94.3 kg

DRUGS (17)
  1. TRULICITY [Suspect]
     Active Substance: DULAGLUTIDE
     Indication: Type 2 diabetes mellitus
     Dates: start: 20200118, end: 20231212
  2. SITAGLIPTIN [Suspect]
     Active Substance: SITAGLIPTIN
     Indication: Type 2 diabetes mellitus
     Dosage: FREQUENCY : DAILY;?
     Route: 048
     Dates: start: 20210216, end: 20230326
  3. ASPIRIN [Concomitant]
     Active Substance: ASPIRIN
  4. APIXABAN [Concomitant]
     Active Substance: APIXABAN
  5. DILTIAZEM [Concomitant]
     Active Substance: DILTIAZEM
  6. EMPAGLIFLOZIN [Concomitant]
     Active Substance: EMPAGLIFLOZIN
  7. FLUOROURACIL [Concomitant]
     Active Substance: FLUOROURACIL
  8. WIXELA INHUB [Concomitant]
     Active Substance: FLUTICASONE PROPIONATE\SALMETEROL XINAFOATE
  9. fluticaonse nasal spray [Concomitant]
  10. LEVOTHYROXINE [Concomitant]
     Active Substance: LEVOTHYROXINE
  11. METFORMIN [Concomitant]
     Active Substance: METFORMIN HYDROCHLORIDE
  12. MIRABEGRON [Concomitant]
     Active Substance: MIRABEGRON
  13. OMEPRAZOLE [Concomitant]
     Active Substance: OMEPRAZOLE
  14. ROSUVASTATIN [Concomitant]
     Active Substance: ROSUVASTATIN
  15. SILODOSIN [Concomitant]
     Active Substance: SILODOSIN
  16. SOTALOL [Concomitant]
     Active Substance: SOTALOL
  17. TADALAFIL [Concomitant]
     Active Substance: TADALAFIL

REACTIONS (1)
  - Pancreatic carcinoma [None]

NARRATIVE: CASE EVENT DATE: 20231201
